FAERS Safety Report 5767270-9 (Version None)
Quarter: 2008Q2

REPORT INFORMATION
  Report Type: 
  Country: None (occurrence: None)
  Receive Date: 20080421
  Receipt Date: 20080421
  Transmission Date: 20081010
  Serious: Yes (Hospitalization)
  Sender: FDA-Public Use
  Company Number: None

PATIENT
  Age: 68 Year
  Sex: Female
  Weight: 72.5755 kg

DRUGS (1)
  1. TEMODAR [Suspect]

REACTIONS (10)
  - APHASIA [None]
  - CEREBRAL INFARCTION [None]
  - CEREBROVASCULAR ACCIDENT [None]
  - DEEP VEIN THROMBOSIS [None]
  - HAEMOPTYSIS [None]
  - HEMIPARESIS [None]
  - PARTIAL SEIZURES WITH SECONDARY GENERALISATION [None]
  - PNEUMONIA ASPIRATION [None]
  - POSTICTAL PARALYSIS [None]
  - RESPIRATORY DISTRESS [None]
